FAERS Safety Report 4462722-6 (Version None)
Quarter: 2004Q3

REPORT INFORMATION
  Report Type: 
  Country: None (occurrence: None)
  Receive Date: 20040927
  Receipt Date: 20040913
  Transmission Date: 20050211
  Serious: Yes (Disabling)
  Sender: FDA-Public Use
  Company Number: 200406402

PATIENT
  Age: 75 Year
  Sex: Female
  Weight: 68.0396 kg

DRUGS (2)
  1. ACULAR [Suspect]
     Indication: POSTOPERATIVE CARE
     Dosage: 1 DROP QID EYE
     Dates: start: 20030804
  2. PRED FORTE [Concomitant]

REACTIONS (4)
  - BLINDNESS UNILATERAL [None]
  - CATARACT [None]
  - EYE PAIN [None]
  - HYPERTENSION [None]
